FAERS Safety Report 23102171 (Version 2)
Quarter: 2023Q4

REPORT INFORMATION
  Report Type: Spontaneous
  Country: US (occurrence: US)
  Receive Date: 20231025
  Receipt Date: 20231115
  Transmission Date: 20240109
  Serious: Yes (Other)
  Sender: FDA-Public Use
  Company Number: US-AUROBINDO-AUR-APL-2023-064309

PATIENT
  Age: 67 Year
  Sex: Female

DRUGS (2)
  1. HYDROXYCHLOROQUINE [Suspect]
     Active Substance: HYDROXYCHLOROQUINE
     Indication: Cogan^s syndrome
     Dosage: 400 MILLIGRAM, ONCE A DAY
     Route: 065
  2. DOXYCYCLINE [Concomitant]
     Active Substance: DOXYCYCLINE
     Indication: Uveitis
     Dosage: UNK
     Route: 065

REACTIONS (1)
  - Drug ineffective [Unknown]
